FAERS Safety Report 10466967 (Version 2)
Quarter: 2014Q4

REPORT INFORMATION
  Report Type: Spontaneous
  Country: US (occurrence: US)
  Receive Date: 20140922
  Receipt Date: 20141030
  Transmission Date: 20150528
  Serious: No
  Sender: FDA-Public Use
  Company Number: US-009507513-1409USA008098

PATIENT
  Sex: Male

DRUGS (1)
  1. DR. SCHOLL^S INGROWN TOENAIL PAIN RELIEVER [Suspect]
     Active Substance: SODIUM SULFIDE
     Indication: PAIN
     Dosage: UNK, UNKNOWN
     Route: 061

REACTIONS (2)
  - Erythema [Unknown]
  - Local swelling [Unknown]
